FAERS Safety Report 18079070 (Version 1)
Quarter: 2020Q3

REPORT INFORMATION
  Report Type: Spontaneous
  Country: US (occurrence: US)
  Receive Date: 20200727
  Receipt Date: 20200727
  Transmission Date: 20201103
  Serious: Yes (Hospitalization)
  Sender: FDA-Public Use
  Company Number: None

PATIENT
  Age: 48 Year
  Sex: Male
  Weight: 9.9 kg

DRUGS (6)
  1. LEVOTHYROXINE. [Concomitant]
     Active Substance: LEVOTHYROXINE
  2. LYSINE 1000 [Concomitant]
  3. BLUMEN CLEAR ADVANCED HAND SANITIZER [Suspect]
     Active Substance: ALCOHOL
     Indication: ANTIBIOTIC PROPHYLAXIS
     Dosage: ?          OTHER STRENGTH:V/V;QUANTITY:1 PUMP;OTHER ROUTE:WET HANDS THOROUGHLY WITH PRODUCT + RUB?
     Dates: start: 20200518, end: 20200723
  4. ACYCLOVIR. [Concomitant]
     Active Substance: ACYCLOVIR
  5. MULTI VITAMINS KIRLAND [Concomitant]
  6. BABY ASPIRIN [Concomitant]
     Active Substance: ASPIRIN

REACTIONS (15)
  - Feeling hot [None]
  - Pollakiuria [None]
  - Hyperhidrosis [None]
  - Palpitations [None]
  - Dizziness [None]
  - Tinnitus [None]
  - Hot flush [None]
  - Respiratory disorder [None]
  - Chest pain [None]
  - Vertigo [None]
  - Malaise [None]
  - Burning sensation [None]
  - Chest discomfort [None]
  - Fatigue [None]
  - Disturbance in attention [None]

NARRATIVE: CASE EVENT DATE: 20200531
